FAERS Safety Report 9539619 (Version 1)
Quarter: 2013Q2

REPORT INFORMATION
  Report Type: Spontaneous
  Country: US (occurrence: None)
  Receive Date: 20130521
  Receipt Date: 20130521
  Transmission Date: 20140414
  Serious: Yes (Other)
  Sender: FDA-Public Use
  Company Number: 1000044488

PATIENT
  Age: 64 Year
  Sex: Female

DRUGS (1)
  1. TUDORZA PRESSAIR [Suspect]
     Indication: EMPHYSEMA
     Dosage: 400 MCG, 2 IN 1 D, RESPIRATORY
     Route: 055
     Dates: start: 20130416

REACTIONS (2)
  - Cough [None]
  - Product taste abnormal [None]
